FAERS Safety Report 10136874 (Version 1)
Quarter: 2014Q2

REPORT INFORMATION
  Report Type: Spontaneous
  Country: AU (occurrence: None)
  Receive Date: 20140425
  Receipt Date: 20140425
  Transmission Date: 20141212
  Serious: Yes (Hospitalization, Other)
  Sender: FDA-Public Use
  Company Number: 2014-AU-004691

PATIENT
  Age: 19 Year
  Sex: Female

DRUGS (5)
  1. SODIUM OXYBATE [Suspect]
     Indication: SUBSTANCE USE
  2. HEROIN [Suspect]
  3. METHAMPHETAMINE HYDROCHLORIDE [Suspect]
     Indication: SUBSTANCE ABUSE
  4. BENZODIAZEPINE [Suspect]
     Indication: SUBSTANCE USE
  5. ETHANOL (ETHANOL) [Suspect]
     Indication: SUBSTANCE USE

REACTIONS (5)
  - Chemical injury [None]
  - Skin graft [None]
  - Burn debridement [None]
  - Substance abuse [None]
  - Thermal burn [None]
